FAERS Safety Report 17158724 (Version 2)
Quarter: 2019Q4

REPORT INFORMATION
  Report Type: Spontaneous
  Country: IL (occurrence: IL)
  Receive Date: 20191216
  Receipt Date: 20191220
  Transmission Date: 20200122
  Serious: No
  Sender: FDA-Public Use
  Company Number: IL-ROCHE-2494698

PATIENT
  Age: 65 Year
  Sex: Male

DRUGS (1)
  1. OCREVUS [Suspect]
     Active Substance: OCRELIZUMAB
     Indication: PRIMARY PROGRESSIVE MULTIPLE SCLEROSIS
     Dosage: ON 04/NOV/2019, HE RECEIVED HIS FOURTH TREATMENT.
     Route: 042
     Dates: start: 201804

REACTIONS (5)
  - Body temperature decreased [Recovered/Resolved]
  - Skin discolouration [Unknown]
  - Herpes virus infection [Unknown]
  - Chills [Recovered/Resolved]
  - Tremor [Recovered/Resolved]

NARRATIVE: CASE EVENT DATE: 201911
